FAERS Safety Report 10013341 (Version 1)
Quarter: 2014Q1

REPORT INFORMATION
  Report Type: Spontaneous
  Country: US (occurrence: US)
  Receive Date: 20140314
  Receipt Date: 20140314
  Transmission Date: 20141002
  Serious: No
  Sender: FDA-Public Use
  Company Number: US-PFIZER INC-2014074730

PATIENT
  Age: 43 Year
  Sex: Female
  Weight: 68.03 kg

DRUGS (1)
  1. EFFEXOR XR [Suspect]
     Indication: ANXIETY
     Dosage: [TWO CAPSULES OF 37.5MG IN THE MORNING AND THREE CAPSULES OF 37.5MG AT NIGHT], 2X/DAY

REACTIONS (2)
  - Product quality issue [Not Recovered/Not Resolved]
  - Local swelling [Not Recovered/Not Resolved]
